FAERS Safety Report 6589633-4 (Version None)
Quarter: 2010Q1

REPORT INFORMATION
  Report Type: 
  Country: None (occurrence: None)
  Receive Date: 20100212
  Receipt Date: 20100127
  Transmission Date: 20100710
  Serious: Yes (Hospitalization, Other)
  Sender: FDA-Public Use
  Company Number: 230912J10USA

PATIENT
  Age: 47 Year
  Sex: Female

DRUGS (3)
  1. REBIF [Suspect]
     Indication: MULTIPLE SCLEROSIS
     Dosage: 44 MCG, 3 IN 1 WEEKS, SUBCUTANEOUS
     Route: 058
     Dates: start: 20020101, end: 20091201
  2. NEURONTIN [Concomitant]
  3. BACLOFEN [Concomitant]

REACTIONS (3)
  - AUTOIMMUNE THYROIDITIS [None]
  - POSTMENOPAUSAL HAEMORRHAGE [None]
  - THYROID CANCER [None]
